FAERS Safety Report 24377303 (Version 1)
Quarter: 2024Q3

REPORT INFORMATION
  Report Type: Spontaneous
  Country: BR (occurrence: BR)
  Receive Date: 20240930
  Receipt Date: 20240930
  Transmission Date: 20241016
  Serious: Yes (Hospitalization, Other)
  Sender: NOVO NORDISK
  Company Number: BR-NOVOPROD-1286392

PATIENT
  Age: 456 Month
  Sex: Male
  Weight: 69 kg

DRUGS (2)
  1. NOVOLIN N [Suspect]
     Active Substance: INSULIN HUMAN
     Indication: Type 1 diabetes mellitus
     Dosage: 60 IU(45 IU IN THE MORNING AND 15 IU AT NIGHT)
  2. NOVOLIN N [Suspect]
     Active Substance: INSULIN HUMAN
     Dosage: 30 IU(20 IU BEFORE BREAKFAST AND 10 IU BEFORE DINNER)

REACTIONS (5)
  - Blood disorder [Recovering/Resolving]
  - Diabetic ketoacidosis [Recovering/Resolving]
  - Diabetic metabolic decompensation [Recovering/Resolving]
  - Gastrointestinal infection [Unknown]
  - Viral infection [Unknown]
